FAERS Safety Report 5301714-1 (Version None)
Quarter: 2007Q1

REPORT INFORMATION
  Report Type: 
  Country: None (occurrence: None)
  Receive Date: 20070208
  Receipt Date: 20061204
  Transmission Date: 20070707
  Serious: Yes (Other)
  Sender: FDA-Public Use
  Company Number: PROG00206003973

PATIENT
  Sex: Female

DRUGS (2)
  1. PROMETRIUM [Suspect]
     Indication: CONVULSION
     Dosage: DAILY ORAL; DURING LAST 10 DAYS OF CYCLE
     Route: 048
  2. PROMETRIUM [Suspect]
     Indication: PROGESTERONE DECREASED
     Dosage: DAILY ORAL; DURING LAST 10 DAYS OF CYCLE
     Route: 048

REACTIONS (1)
  - CONVULSION [None]
